FAERS Safety Report 21503750 (Version 2)
Quarter: 2023Q1

REPORT INFORMATION
  Report Type: Report from Study
  Country: US (occurrence: US)
  Receive Date: 20221025
  Receipt Date: 20230110
  Transmission Date: 20230418
  Serious: No
  Sender: FDA-Public Use
  Company Number: US-NOVARTISTESTPH-NVSC2022US239382

PATIENT
  Sex: Female

DRUGS (2)
  1. COSENTYX [Suspect]
     Active Substance: SECUKINUMAB
     Indication: Psoriasis
     Dosage: 150 MG, QW (FIVE WEEKLY LOADING DOSES AFTER 2 INJECTIONS EVERY 4 WEEKS))
     Route: 058
     Dates: start: 202206
  2. COSENTYX [Suspect]
     Active Substance: SECUKINUMAB
     Dosage: 300 MG, QMO (2 X 150MG INJECTIONS EVERY 4 WEEKS)
     Route: 058

REACTIONS (1)
  - Therapeutic product effect decreased [Not Recovered/Not Resolved]
